FAERS Safety Report 4450689-6 (Version None)
Quarter: 2004Q3

REPORT INFORMATION
  Report Type: 
  Country: None (occurrence: None)
  Receive Date: 20040915
  Receipt Date: 20040915
  Transmission Date: 20050211
  Serious: Yes (Hospitalization)
  Sender: FDA-Public Use
  Company Number: None

PATIENT
  Age: 44 Year
  Sex: Male
  Weight: 80 kg

DRUGS (15)
  1. IBUPROFEN [Suspect]
     Indication: PAIN
     Dosage: 800MG  TID  ORAL
     Route: 048
     Dates: start: 19990723, end: 20040205
  2. ETODOLAC [Suspect]
     Indication: PAIN
     Dosage: 400MG  TID  ORAL
     Route: 048
     Dates: start: 20001026, end: 20040205
  3. DEXAMETHASONE [Concomitant]
  4. ASPIRIN [Concomitant]
  5. QUETIAPINE FUMARATE [Concomitant]
  6. TRAZODONE HCL [Concomitant]
  7. RABEPRAZOLE NA [Concomitant]
  8. CITALOPRAM HYDROBROMIDE [Concomitant]
  9. CYANOCOBALAMIN [Concomitant]
  10. GABAPENTIN [Concomitant]
  11. CLONAZEPAM [Concomitant]
  12. VERAPAMIL HCL [Concomitant]
  13. HYDROXYZINE PAMOATE [Concomitant]
  14. HYDROCODONE 5/ACETAMINOPHEN [Concomitant]
  15. FERROUS SULFATE TAB [Concomitant]

REACTIONS (5)
  - ABDOMINAL PAIN LOWER [None]
  - FAECES DISCOLOURED [None]
  - HAEMATEMESIS [None]
  - IRON DEFICIENCY ANAEMIA [None]
  - RECTAL HAEMORRHAGE [None]
